FAERS Safety Report 19922495 (Version 3)
Quarter: 2022Q1

REPORT INFORMATION
  Report Type: Spontaneous
  Country: US (occurrence: US)
  Receive Date: 20211005
  Receipt Date: 20220202
  Transmission Date: 20220423
  Serious: Yes (Hospitalization)
  Sender: FDA-Public Use
  Company Number: US-CELGENE-USA-20210907814

PATIENT
  Age: 84 Year
  Sex: Female
  Weight: 43.6 kg

DRUGS (57)
  1. AZACITIDINE [Suspect]
     Active Substance: AZACITIDINE
     Indication: Acute myeloid leukaemia
     Route: 058
     Dates: end: 20210901
  2. AZACITIDINE [Suspect]
     Active Substance: AZACITIDINE
     Dosage: 75 MILLIGRAM/SQ. METER
     Route: 058
     Dates: start: 20180426, end: 20180502
  3. AZACITIDINE [Suspect]
     Active Substance: AZACITIDINE
     Dosage: 75 MILLIGRAM/SQ. METER
     Route: 041
     Dates: start: 20180606, end: 20181010
  4. AZACITIDINE [Suspect]
     Active Substance: AZACITIDINE
     Dosage: 37 MILLIGRAM/SQ. METER
     Route: 041
     Dates: start: 20181011, end: 20190109
  5. AZACITIDINE [Suspect]
     Active Substance: AZACITIDINE
     Dosage: 37.5 MILLIGRAM/SQ. METER
     Route: 041
     Dates: start: 20190214, end: 20210901
  6. AZACITIDINE [Suspect]
     Active Substance: AZACITIDINE
     Dosage: 37.5 MILLIGRAM/SQ. METER
     Route: 041
     Dates: start: 20211007
  7. VENETOCLAX [Suspect]
     Active Substance: VENETOCLAX
     Indication: Acute myeloid leukaemia
     Route: 065
  8. UMECLIDINIUM BROMIDE\VILANTEROL TRIFENATATE [Concomitant]
     Active Substance: UMECLIDINIUM BROMIDE\VILANTEROL TRIFENATATE
     Indication: Chronic obstructive pulmonary disease
     Route: 055
     Dates: start: 20180426
  9. SERTRALINE [Concomitant]
     Active Substance: SERTRALINE HYDROCHLORIDE
     Indication: Depression
     Dosage: 1 PUFF
     Route: 048
     Dates: start: 20210828
  10. SENNA [Concomitant]
     Active Substance: SENNA LEAF\SENNOSIDES\SENNOSIDES A AND B
     Indication: Constipation
     Route: 065
  11. SENNA [Concomitant]
     Active Substance: SENNA LEAF\SENNOSIDES\SENNOSIDES A AND B
     Dosage: AT NIGHT
     Route: 048
     Dates: start: 20210513
  12. PROCHLORPERAZINE [Concomitant]
     Active Substance: PROCHLORPERAZINE
     Indication: Product used for unknown indication
     Dosage: 40 MILLIGRAM
     Route: 065
  13. ONDANSETRON [Concomitant]
     Active Substance: ONDANSETRON
     Indication: Nausea
     Dosage: 12 MILLIGRAM
     Route: 041
     Dates: start: 20190624
  14. OLODATEROL-TIOTROPIUM [Concomitant]
     Indication: Dyspnoea
     Route: 055
     Dates: start: 20210104
  15. METOPROLOL [Concomitant]
     Active Substance: METOPROLOL
     Indication: Product used for unknown indication
     Dosage: 25 MILLIGRAM
     Route: 065
  16. MELATONIN [Concomitant]
     Active Substance: MELATONIN
     Indication: Insomnia
     Route: 065
  17. MELATONIN [Concomitant]
     Active Substance: MELATONIN
     Dosage: 5 MILLIGRAM
     Route: 048
     Dates: start: 20191103, end: 20210828
  18. MELATONIN [Concomitant]
     Active Substance: MELATONIN
     Route: 048
     Dates: start: 20210621
  19. MELATONIN [Concomitant]
     Active Substance: MELATONIN
     Dosage: 9 MILLIGRAM
     Route: 048
     Dates: start: 20210626, end: 20210924
  20. MELATONIN [Concomitant]
     Active Substance: MELATONIN
     Dosage: 3 MILLIGRAM
     Route: 048
     Dates: start: 20210924
  21. MAGNESIUM HYDROXIDE [Concomitant]
     Active Substance: MAGNESIUM HYDROXIDE
     Indication: Constipation
     Route: 065
     Dates: start: 20210513
  22. LEVOFLOXACIN [Concomitant]
     Active Substance: LEVOFLOXACIN
     Indication: Neutropenia
     Dosage: 500 MILLIGRAM
     Route: 065
     Dates: start: 20190616
  23. HYDROMORPHONE [Concomitant]
     Active Substance: HYDROMORPHONE
     Indication: Arthralgia
     Dosage: 1-2 TABLETS
     Route: 065
  24. HYDROMORPHONE [Concomitant]
     Active Substance: HYDROMORPHONE
     Dosage: 1-2 TABLETS
     Route: 048
     Dates: start: 20210521
  25. GABAPENTIN [Concomitant]
     Active Substance: GABAPENTIN
     Indication: Pain
     Dosage: 200 MILLIGRAM
     Route: 048
     Dates: start: 20210513
  26. GABAPENTIN [Concomitant]
     Active Substance: GABAPENTIN
     Indication: Neuropathy peripheral
  27. GABAPENTIN [Concomitant]
     Active Substance: GABAPENTIN
     Indication: Paraesthesia
  28. FENTANYL [Concomitant]
     Active Substance: FENTANYL
     Indication: Arthralgia
     Dosage: 12.5 MILLIGRAM
     Route: 061
     Dates: start: 20210515
  29. FAMOTIDINE [Concomitant]
     Active Substance: FAMOTIDINE
     Indication: Gastrooesophageal reflux disease
     Route: 065
  30. FAMOTIDINE [Concomitant]
     Active Substance: FAMOTIDINE
     Dosage: 20 MILLIGRAM
     Route: 048
     Dates: start: 20210828
  31. DOCUSATE [Concomitant]
     Active Substance: DOCUSATE
     Indication: Constipation
     Route: 065
  32. DOCUSATE [Concomitant]
     Active Substance: DOCUSATE
     Route: 048
     Dates: start: 20210517
  33. CYANOCOBALAMIN [Concomitant]
     Active Substance: CYANOCOBALAMIN
     Indication: Anaemia
     Dosage: 100 MILLIGRAM
     Route: 065
  34. CYANOCOBALAMIN [Concomitant]
     Active Substance: CYANOCOBALAMIN
     Indication: Vitamin supplementation
     Dosage: 1000 MILLIGRAM
     Route: 048
     Dates: start: 20180426
  35. CYANOCOBALAMIN [Concomitant]
     Active Substance: CYANOCOBALAMIN
     Dosage: 1000 MILLIGRAM
     Route: 048
     Dates: start: 20191103
  36. CHOLECALCIFEROL [Concomitant]
     Active Substance: CHOLECALCIFEROL
     Indication: Osteoporosis
     Dosage: 2000 IU (INTERNATIONAL UNIT)
     Route: 065
     Dates: start: 20210626
  37. ASPIRIN [Concomitant]
     Active Substance: ASPIRIN
     Indication: Coronary artery disease
     Dosage: 81 MILLIGRAM
     Route: 048
     Dates: start: 2015
  38. ALENDRONATE [Concomitant]
     Active Substance: ALENDRONATE SODIUM
     Indication: Product used for unknown indication
     Dosage: 10 MILLIGRAM
     Route: 065
  39. ACYCLOVIR [Concomitant]
     Active Substance: ACYCLOVIR
     Indication: Infection prophylaxis
     Dosage: 800 MILLIGRAM
     Route: 065
     Dates: start: 20180524
  40. ACETYLCYSTEINE [Concomitant]
     Active Substance: ACETYLCYSTEINE
     Indication: Chronic obstructive pulmonary disease
     Dosage: 600 MILLIGRAM
     Route: 048
     Dates: start: 201707
  41. ALBUTEROL [Concomitant]
     Active Substance: ALBUTEROL
     Indication: Dyspnoea
     Route: 055
     Dates: start: 20200501
  42. FLUTICASONE [Concomitant]
     Active Substance: FLUTICASONE
     Indication: Chronic obstructive pulmonary disease
     Route: 045
     Dates: start: 20180426
  43. FOLIC ACID [Concomitant]
     Active Substance: FOLIC ACID
     Indication: Supplementation therapy
     Dosage: 1 MILLIGRAM
     Route: 048
     Dates: start: 20210515
  44. FOSAMAX [Concomitant]
     Active Substance: ALENDRONATE SODIUM
     Indication: Bone loss
     Dosage: 70 MILLIGRAM
     Route: 048
     Dates: start: 20200910
  45. LIDOCAINE [Concomitant]
     Active Substance: LIDOCAINE
     Indication: Pain
     Route: 061
     Dates: start: 20190216
  46. MIRALAX [Concomitant]
     Active Substance: POLYETHYLENE GLYCOL 3350
     Indication: Constipation
     Dosage: 17 MILLIGRAM
     Route: 048
     Dates: start: 20210513
  47. OXYGEN [Concomitant]
     Active Substance: OXYGEN
     Indication: Chronic obstructive pulmonary disease
     Dosage: 3 LITERS
     Route: 055
     Dates: start: 2015
  48. THIAMINE [Concomitant]
     Active Substance: THIAMINE
     Indication: Supplementation therapy
     Dosage: 100 MILLIGRAM
     Route: 041
     Dates: start: 20210518
  49. ZOLOFT [Concomitant]
     Active Substance: SERTRALINE HYDROCHLORIDE
     Indication: Depression
     Dosage: 50 MILLIGRAM
     Route: 048
     Dates: start: 2014, end: 20210828
  50. ZOLOFT [Concomitant]
     Active Substance: SERTRALINE HYDROCHLORIDE
     Dosage: 25 MILLIGRAM
     Route: 048
     Dates: start: 20210626
  51. ZOFRAN [Concomitant]
     Active Substance: ONDANSETRON HYDROCHLORIDE
     Indication: Nausea
     Dosage: 16 MILLIGRAM
     Route: 048
     Dates: start: 20191103, end: 20210921
  52. ZOFRAN [Concomitant]
     Active Substance: ONDANSETRON HYDROCHLORIDE
     Dosage: 24 MILLIGRAM
     Route: 048
     Dates: start: 20210921
  53. VANCOMYCIN [Concomitant]
     Active Substance: VANCOMYCIN
     Indication: Infection prophylaxis
     Dosage: 125 MILLIGRAM
     Route: 048
     Dates: start: 20200930
  54. VOLTAREN [Concomitant]
     Active Substance: DICLOFENAC SODIUM
     Indication: Chest pain
     Dosage: 2 MILLIGRAM
     Route: 061
     Dates: start: 20210516
  55. NARCAN [Concomitant]
     Active Substance: NALOXONE HYDROCHLORIDE
     Indication: Overdose
     Dosage: 4 MILLIGRAM
     Route: 065
     Dates: start: 20210924
  56. PROTONIX [Concomitant]
     Active Substance: PANTOPRAZOLE SODIUM
     Indication: Gastrooesophageal reflux disease
     Dosage: 40 MILLIGRAM
     Route: 048
     Dates: start: 20210918
  57. TYLENOL [Concomitant]
     Active Substance: ACETAMINOPHEN
     Indication: Arthralgia
     Dosage: 1950 MILLIGRAM
     Route: 048
     Dates: start: 20210514

REACTIONS (1)
  - Chondrocalcinosis pyrophosphate [Recovered/Resolved]

NARRATIVE: CASE EVENT DATE: 20210916
